FAERS Safety Report 7354639-4 (Version None)
Quarter: 2011Q1

REPORT INFORMATION
  Report Type: 
  Country: None (occurrence: None)
  Receive Date: 20110316
  Receipt Date: 20110310
  Transmission Date: 20110831
  Serious: Yes (Other)
  Sender: FDA-Public Use
  Company Number: US-PFIZER INC-2010154698

PATIENT
  Sex: Male

DRUGS (2)
  1. VIAGRA [Suspect]
     Indication: ERECTILE DYSFUNCTION
     Dosage: UNK
  2. VIAGRA [Suspect]
     Dosage: UNK

REACTIONS (3)
  - HEADACHE [None]
  - DRUG EFFECT DECREASED [None]
  - ERECTION INCREASED [None]
